FAERS Safety Report 7078873-6 (Version None)
Quarter: 2010Q4

REPORT INFORMATION
  Report Type: 
  Country: None (occurrence: None)
  Receive Date: 20101102
  Receipt Date: 20101021
  Transmission Date: 20110411
  Serious: Yes (Other)
  Sender: FDA-Public Use
  Company Number: US-AMGEN-USASP2010001336

PATIENT

DRUGS (1)
  1. ENBREL [Suspect]
     Indication: RHEUMATOID ARTHRITIS
     Dates: end: 20101001

REACTIONS (3)
  - EAR INFECTION [None]
  - PAIN IN EXTREMITY [None]
  - TYMPANIC MEMBRANE PERFORATION [None]
